FAERS Safety Report 5287629-6 (Version None)
Quarter: 2007Q1

REPORT INFORMATION
  Report Type: 
  Country: None (occurrence: None)
  Receive Date: 20070103
  Receipt Date: 20061016
  Transmission Date: 20070707
  Serious: Yes (Other)
  Sender: FDA-Public Use
  Company Number: 147562USA

PATIENT
  Age: 9 Year
  Sex: Female

DRUGS (4)
  1. LAMOTRIGINE TABLETS (LAMOTRIGINE) [Suspect]
     Indication: CONVULSION
     Dosage: 4 PILLS THREE TIMES A DAY (25 MG),ORAL
     Route: 048
     Dates: start: 20060904, end: 20060908
  2. PRAMIPEXOLE DIHYDROCHLORIDE [Concomitant]
  3. DIPHENHYDRAMINE HYDROCHLORIDE [Concomitant]
  4. OMEPRAZOLE [Concomitant]

REACTIONS (2)
  - CONVULSION [None]
  - DRUG INEFFECTIVE [None]
